FAERS Safety Report 8163802-4 (Version None)
Quarter: 2012Q1

REPORT INFORMATION
  Report Type: 
  Country: None (occurrence: None)
  Receive Date: 20120224
  Receipt Date: 20120220
  Transmission Date: 20120608
  Serious: Yes (Hospitalization)
  Sender: FDA-Public Use
  Company Number: US-TEVA-324160USA

PATIENT
  Age: 78 Year
  Sex: Male
  Weight: 85 kg

DRUGS (30)
  1. ALLOPURINOL [Concomitant]
     Dosage: 100MG
     Route: 065
  2. BACLOFEN [Concomitant]
     Dosage: 10MG
     Route: 065
  3. ERGOCALCIFEROL [Concomitant]
     Dosage: 5000U
     Route: 065
  4. TERAZOSIN HCL [Concomitant]
     Dosage: 2MG
     Route: 065
  5. CINACALCET HYDROCHLORIDE [Concomitant]
     Dosage: 30MG
     Route: 065
  6. CLONIDINE [Concomitant]
     Dosage: 0.1MG
     Route: 065
  7. TOCOPHEROL CONCENTRATE CAP [Concomitant]
     Dosage: 100U
     Route: 065
  8. GABAPENTIN [Concomitant]
     Dosage: 100MG
     Route: 065
  9. CIPROFLOXACIN [Concomitant]
     Route: 065
  10. ACETAMINOPHEN AND OXYCODONE HCL [Suspect]
     Dosage: 5-10MG/500MG
     Route: 065
  11. COLCHICINE [Concomitant]
     Dosage: 0.6MG
     Route: 065
  12. DOCUSATE CALCIUM [Concomitant]
     Dosage: 250MG
     Route: 065
  13. FINASTERIDE [Concomitant]
     Dosage: 5MG
     Route: 065
  14. OMEPRAZOLE [Concomitant]
     Dosage: 20MG
     Route: 065
  15. ASPIRIN [Concomitant]
     Dosage: 81MG
     Route: 065
  16. FERROUS SULFATE TAB [Concomitant]
     Dosage: 325MG
     Route: 065
  17. SIMVASTATIN [Concomitant]
     Dosage: 80MG
     Route: 065
  18. VARDENAFIL HYDROCHLORIDE (LEVITRA) [Concomitant]
     Dosage: 20MG
     Route: 065
  19. DIPHENHYDRAMINE HCL [Concomitant]
     Route: 065
  20. MORPHINE [Suspect]
     Indication: ANALGESIC THERAPY
     Route: 065
  21. ACETAMINOPHEN [Concomitant]
     Dosage: 500MG
     Route: 065
  22. LISINOPRIL [Concomitant]
     Dosage: 2.5MG
     Route: 065
  23. CAPSAICIN [Concomitant]
     Dosage: 60G (0.25%)
     Route: 065
  24. DESIPRAMINE HCL [Concomitant]
     Dosage: 50MG
     Route: 065
  25. FUROSEMIDE [Concomitant]
     Dosage: 20MG
     Route: 065
  26. METFORMIN HCL [Concomitant]
     Dosage: 1000MG
     Route: 065
  27. NAPROXEN [Concomitant]
     Dosage: 500MG
     Route: 065
  28. RANITIDINE [Concomitant]
     Dosage: 150MG
     Route: 065
  29. INSULIN [Concomitant]
     Dosage: SLIDING SCALE
     Route: 065
  30. HYDROCODONE BITARTRATE + ACETAMINOPHEN [Concomitant]
     Dosage: 5/500MG
     Route: 065

REACTIONS (3)
  - CONFUSIONAL STATE [None]
  - DELIRIUM [None]
  - AGITATION [None]
